FAERS Safety Report 24840680 (Version 3)
Quarter: 2025Q4

REPORT INFORMATION
  Report Type: Report from Study
  Country: IN (occurrence: IN)
  Receive Date: 20250114
  Receipt Date: 20251229
  Transmission Date: 20260117
  Serious: Yes (Other)
  Sender: PFIZER
  Company Number: IN-PFIZER INC-PV202400008555

PATIENT
  Age: 68 Year
  Sex: Male

DRUGS (3)
  1. DACOMITINIB [Suspect]
     Active Substance: DACOMITINIB
     Indication: Lung adenocarcinoma
     Dosage: 45 MG, 1X/DAY
     Route: 048
     Dates: start: 202304
  2. DACOMITINIB [Suspect]
     Active Substance: DACOMITINIB
     Dosage: 30 MG, 1X/DAY
     Route: 048
     Dates: start: 20241030
  3. DACOMITINIB [Suspect]
     Active Substance: DACOMITINIB
     Dosage: 45 MG

REACTIONS (12)
  - Lung adenocarcinoma [Unknown]
  - Malignant neoplasm progression [Unknown]
  - Eye operation [Unknown]
  - Diarrhoea [Unknown]
  - Rash [Unknown]
  - Pruritus [Unknown]
  - Fungal infection [Unknown]
  - Lung disorder [Unknown]
  - Blood triglycerides increased [Unknown]
  - Glycosylated haemoglobin increased [Unknown]
  - Blood uric acid increased [Unknown]
  - Haemoglobin decreased [Unknown]

NARRATIVE: CASE EVENT DATE: 20250126
